FAERS Safety Report 17237408 (Version 1)
Quarter: 2020Q1

REPORT INFORMATION
  Report Type: Spontaneous
  Country: DE (occurrence: DE)
  Receive Date: 20200106
  Receipt Date: 20200106
  Transmission Date: 20200409
  Serious: Yes (Hospitalization)
  Sender: FDA-Public Use
  Company Number: DE-MYLANLABS-2020M1000170

PATIENT
  Sex: Female
  Weight: 96 kg

DRUGS (5)
  1. PEGFILGRASTIM [Suspect]
     Active Substance: PEGFILGRASTIM
     Dosage: 6 MILLIGRAM (STRENGTH: 6 MG FIRST CYCLE)
     Dates: start: 20190703, end: 20190703
  2. PEGFILGRASTIM [Suspect]
     Active Substance: PEGFILGRASTIM
     Dosage: 6 MILLIGRAM (STRENGTH: 6 MG SECOND CYCLE)
     Dates: start: 20190724, end: 20190724
  3. DOCETAXEL. [Suspect]
     Active Substance: DOCETAXEL
     Indication: BREAST CANCER
     Dosage: 148.5 MILLIGRAM, QD (STRENGTH: 148.5 MG NO RE-EXPOSITION)
     Route: 042
     Dates: start: 20190903, end: 20190903
  4. PEGFILGRASTIM [Suspect]
     Active Substance: PEGFILGRASTIM
     Dosage: 6 MILLIGRAM (STRENGTH: 6 MG FOURTH CYCLE)
     Dates: start: 20190904, end: 20190904
  5. PEGFILGRASTIM [Suspect]
     Active Substance: PEGFILGRASTIM
     Indication: BREAST CANCER
     Dosage: STRENGTH: 6 MG THIRD CYCLE
     Dates: start: 20190814, end: 20190814

REACTIONS (2)
  - Dyspnoea exertional [Unknown]
  - Anaemia [Unknown]

NARRATIVE: CASE EVENT DATE: 20190917
